FAERS Safety Report 7116861-1 (Version None)
Quarter: 2010Q4

REPORT INFORMATION
  Report Type: 
  Country: None (occurrence: None)
  Receive Date: 20101122
  Receipt Date: 20101110
  Transmission Date: 20110411
  Serious: Yes (Hospitalization)
  Sender: FDA-Public Use
  Company Number: US-MERCK-1008USA03185

PATIENT
  Age: 61 Year
  Sex: Male

DRUGS (2)
  1. ISENTRESS [Suspect]
     Indication: HIV TEST POSITIVE
     Route: 048
     Dates: start: 20100617
  2. ISENTRESS [Suspect]
     Route: 048
     Dates: end: 20100805

REACTIONS (4)
  - DIARRHOEA [None]
  - DRUG RASH WITH EOSINOPHILIA AND SYSTEMIC SYMPTOMS [None]
  - LYMPHADENOPATHY [None]
  - RENAL FAILURE ACUTE [None]
